FAERS Safety Report 18991662 (Version 2)
Quarter: 2022Q4

REPORT INFORMATION
  Report Type: Spontaneous
  Country: CA (occurrence: CA)
  Receive Date: 20210310
  Receipt Date: 20221028
  Transmission Date: 20230113
  Serious: Yes (Hospitalization, Other)
  Sender: FDA-Public Use
  Company Number: CA-BOEHRINGERINGELHEIM-2021-BI-087663

PATIENT
  Age: 70 Year
  Sex: Female

DRUGS (15)
  1. PRAMIPEXOLE [Suspect]
     Active Substance: PRAMIPEXOLE
     Indication: Parkinson^s disease
  2. PRAMIPEXOLE [Suspect]
     Active Substance: PRAMIPEXOLE
  3. PRAMIPEXOLE [Suspect]
     Active Substance: PRAMIPEXOLE
  4. AMANTADINE [Suspect]
     Active Substance: AMANTADINE
     Indication: Psychotic disorder
  5. AMANTADINE [Suspect]
     Active Substance: AMANTADINE
     Indication: Parkinson^s disease
  6. CARBIDOPA\LEVODOPA [Suspect]
     Active Substance: CARBIDOPA\LEVODOPA
     Indication: Parkinson^s disease
  7. CLOZAPINE [Suspect]
     Active Substance: CLOZAPINE
     Indication: Parkinson^s disease
  8. CLOZAPINE [Suspect]
     Active Substance: CLOZAPINE
     Indication: Psychotic disorder
  9. CLOZAPINE [Suspect]
     Active Substance: CLOZAPINE
  10. CLOZAPINE [Suspect]
     Active Substance: CLOZAPINE
  11. ENTACAPONE [Suspect]
     Active Substance: ENTACAPONE
     Indication: Parkinson^s disease
  12. FLUDROCORTISONE [Suspect]
     Active Substance: FLUDROCORTISONE
     Indication: Psychotic disorder
  13. NABILONE [Suspect]
     Active Substance: NABILONE
     Indication: Parkinson^s disease
     Route: 048
  14. NABILONE [Suspect]
     Active Substance: NABILONE
     Dosage: 2 DOSAGE FORM
  15. QUETIAPINE [Suspect]
     Active Substance: QUETIAPINE
     Indication: Psychotic disorder
     Route: 048

REACTIONS (8)
  - Acute psychosis [Unknown]
  - Dyskinesia [Unknown]
  - Dystonia [Unknown]
  - Orthostatic hypotension [Unknown]
  - Parkinson^s disease psychosis [Unknown]
  - Psychotic disorder [Unknown]
  - Therapeutic product effect incomplete [Unknown]
  - Therapeutic response shortened [Unknown]
